FAERS Safety Report 10414785 (Version 1)
Quarter: 2014Q3

REPORT INFORMATION
  Report Type: Spontaneous
  Country: DE (occurrence: DE)
  Receive Date: 20140828
  Receipt Date: 20140828
  Transmission Date: 20150326
  Serious: Yes (Other)
  Sender: FDA-Public Use
  Company Number: DE-SUN PHARMACEUTICAL INDUSTRIES LTD-2014SUN01941

PATIENT
  Sex: Female

DRUGS (2)
  1. TREOSULFAN [Suspect]
     Active Substance: TREOSULFAN
     Indication: NEOPLASM MALIGNANT
     Dosage: 1 G/M2 (ON DAYS 1-4)
     Route: 048
  2. GEMCITABINE [Suspect]
     Active Substance: GEMCITABINE\GEMCITABINE HYDROCHLORIDE
     Indication: NEOPLASM MALIGNANT
     Dosage: 450 MG/M2, ON DAY 1 OF 1-11 BIWEEKLY COURSE
     Route: 042

REACTIONS (5)
  - Neutropenia [Unknown]
  - Pyrexia [Unknown]
  - Anaemia [Unknown]
  - Dermatitis allergic [Unknown]
  - Infection [Unknown]
